FAERS Safety Report 7626862-2 (Version None)
Quarter: 2011Q3

REPORT INFORMATION
  Report Type: 
  Country: None (occurrence: None)
  Receive Date: 20110721
  Receipt Date: 20110713
  Transmission Date: 20111222
  Serious: Yes (Other)
  Sender: FDA-Public Use
  Company Number: US-US-EMD SERONO, INC.-7070700

PATIENT
  Sex: Female
  Weight: 47 kg

DRUGS (1)
  1. REBIF [Suspect]
     Indication: PRODUCT USED FOR UNKNOWN INDICATION
     Route: 058
     Dates: start: 20020731

REACTIONS (4)
  - KNEE ARTHROPLASTY [None]
  - OEDEMA PERIPHERAL [None]
  - UPPER LIMB FRACTURE [None]
  - CONSTIPATION [None]
